FAERS Safety Report 7914033-1 (Version None)
Quarter: 2011Q4

REPORT INFORMATION
  Report Type: 
  Country: None (occurrence: None)
  Receive Date: 20111110
  Receipt Date: 20111101
  Transmission Date: 20120403
  Serious: Yes (Hospitalization)
  Sender: FDA-Public Use
  Company Number: IMP_05446_2011

PATIENT
  Age: 47 Year
  Sex: Male

DRUGS (1)
  1. METFORMIN HCL [Suspect]
     Indication: DIABETES MELLITUS
     Dosage: DF DAILY

REACTIONS (22)
  - HYPERVENTILATION [None]
  - DEHYDRATION [None]
  - AGITATION [None]
  - BUNDLE BRANCH BLOCK RIGHT [None]
  - TOXICITY TO VARIOUS AGENTS [None]
  - HYPOGLYCAEMIA [None]
  - SINUS TACHYCARDIA [None]
  - DIALYSIS [None]
  - RENAL FAILURE ACUTE [None]
  - BLOOD PRESSURE DECREASED [None]
  - DIARRHOEA [None]
  - DEPRESSION [None]
  - ECONOMIC PROBLEM [None]
  - ELECTROCARDIOGRAM REPOLARISATION ABNORMALITY [None]
  - DEPRESSED LEVEL OF CONSCIOUSNESS [None]
  - BRADYCARDIA [None]
  - VOMITING [None]
  - METABOLIC ACIDOSIS [None]
  - LACTIC ACIDOSIS [None]
  - ALTERED STATE OF CONSCIOUSNESS [None]
  - DYSPNOEA [None]
  - CARDIAC ARREST [None]
